FAERS Safety Report 7953033-2 (Version None)
Quarter: 2011Q4

REPORT INFORMATION
  Report Type: 
  Country: None (occurrence: None)
  Receive Date: 20111201
  Receipt Date: 20111125
  Transmission Date: 20120403
  Serious: Yes (Other)
  Sender: FDA-Public Use
  Company Number: PHHY2011CL104480

PATIENT
  Sex: Female

DRUGS (2)
  1. ESCITALOPRAM [Concomitant]
     Dosage: UNK UKN, UNK
  2. GILENYA [Suspect]
     Indication: MULTIPLE SCLEROSIS
     Dosage: 0.5 MG/ DAY
     Dates: start: 20110715

REACTIONS (1)
  - BREAST CYST [None]
